FAERS Safety Report 13243037 (Version 3)
Quarter: 2017Q4

REPORT INFORMATION
  Report Type: Spontaneous
  Country: US (occurrence: US)
  Receive Date: 20170216
  Receipt Date: 20171104
  Transmission Date: 20180320
  Serious: No
  Sender: FDA-Public Use
  Company Number: US-TEVA-739397ACC

PATIENT
  Age: 50 Year
  Sex: Female

DRUGS (19)
  1. METFORMIN [Concomitant]
     Active Substance: METFORMIN HYDROCHLORIDE
     Dates: start: 20161128
  2. METFORMIN [Concomitant]
     Active Substance: METFORMIN HYDROCHLORIDE
     Dates: start: 20170619
  3. GABAPENTIN. [Concomitant]
     Active Substance: GABAPENTIN
     Dates: start: 20170507, end: 20171103
  4. METOPROLOL TARTRATE. [Concomitant]
     Active Substance: METOPROLOL TARTRATE
     Dates: start: 20170619
  5. PROAIR HFA [Concomitant]
     Active Substance: ALBUTEROL SULFATE
  6. METOPROLOL TARTRATE. [Concomitant]
     Active Substance: METOPROLOL TARTRATE
     Dates: start: 20161128
  7. FLINTSTONES [Concomitant]
     Dates: start: 20161128
  8. CALTRATE [Concomitant]
     Active Substance: CALCIUM CARBONATE
     Dosage: 600-800
     Dates: start: 20161128
  9. MAGNESIUM [Concomitant]
     Active Substance: MAGNESIUM
     Dates: start: 20161128
  10. VENTOLIN [Concomitant]
     Active Substance: ALBUTEROL SULFATE
  11. METFORMIN [Concomitant]
     Active Substance: METFORMIN HYDROCHLORIDE
     Dates: start: 20171024
  12. ATORVASTATIN [Concomitant]
     Active Substance: ATORVASTATIN
     Dates: start: 20170619
  13. IRON [Concomitant]
     Active Substance: IRON
     Dates: start: 20161128
  14. LYRICA [Concomitant]
     Active Substance: PREGABALIN
     Dates: start: 20170927
  15. COPAXONE [Suspect]
     Active Substance: GLATIRAMER ACETATE
     Indication: MULTIPLE SCLEROSIS
     Route: 058
     Dates: start: 20161129
  16. OMEPRAZOLE. [Concomitant]
     Active Substance: OMEPRAZOLE
     Dates: start: 20161128
  17. MELOXICAM. [Concomitant]
     Active Substance: MELOXICAM
  18. LISINOPRIL. [Concomitant]
     Active Substance: LISINOPRIL
     Dates: start: 20170619
  19. LISINOPRIL. [Concomitant]
     Active Substance: LISINOPRIL
     Dates: start: 20170926

REACTIONS (4)
  - Vertigo [Not Recovered/Not Resolved]
  - Injection site pruritus [Not Recovered/Not Resolved]
  - Drug dose omission [Not Recovered/Not Resolved]
  - Fall [Not Recovered/Not Resolved]

NARRATIVE: CASE EVENT DATE: 201701
